FAERS Safety Report 5851734-3 (Version None)
Quarter: 2008Q3

REPORT INFORMATION
  Report Type: 
  Country: None (occurrence: None)
  Receive Date: 20080820
  Receipt Date: 20080815
  Transmission Date: 20090109
  Serious: Yes (Life-Threatening, Other)
  Sender: FDA-Public Use
  Company Number: PHEH2007US15304

PATIENT
  Sex: Female

DRUGS (3)
  1. LESCOL XL [Suspect]
     Dosage: 80 MG, UNK
     Route: 048
  2. LESCOL XL [Suspect]
     Dosage: 80 MG, UNK
     Route: 048
     Dates: start: 20071012, end: 20071112
  3. TRICOR [Concomitant]

REACTIONS (4)
  - DEPRESSION [None]
  - FEELING ABNORMAL [None]
  - INSOMNIA [None]
  - SUICIDAL BEHAVIOUR [None]
